FAERS Safety Report 9187970 (Version 1)
Quarter: 2013Q1

REPORT INFORMATION
  Report Type: Spontaneous
  Country: US (occurrence: US)
  Receive Date: 20130325
  Receipt Date: 20130325
  Transmission Date: 20140127
  Serious: No
  Sender: FDA-Public Use
  Company Number: US-MYLANLABS-2012S1021537

PATIENT
  Sex: Male

DRUGS (3)
  1. FENTANYL TRANSDERMAL SYSTEM [Suspect]
     Indication: BACK PAIN
     Dosage: 2 PATCHES EVERY 48HR
     Route: 062
     Dates: start: 20121014
  2. NORCO [Concomitant]
  3. FIORICET WITH CODEINE [Concomitant]

REACTIONS (1)
  - Expired drug administered [Not Recovered/Not Resolved]
